FAERS Safety Report 8893031 (Version 1)
Quarter: 2012Q4

REPORT INFORMATION
  Report Type: Spontaneous
  Country: US (occurrence: None)
  Receive Date: 20121106
  Receipt Date: 20121106
  Transmission Date: 20130627
  Serious: No
  Sender: FDA-Public Use
  Company Number: None

PATIENT
  Sex: Female

DRUGS (2)
  1. REQUIP [Suspect]
     Indication: PARKINSON^S DISEASE
  2. MIRAPEX [Suspect]
     Indication: PARKINSON^S DISEASE

REACTIONS (1)
  - Oedema peripheral [None]
